FAERS Safety Report 11857509 (Version 1)
Quarter: 2015Q4

REPORT INFORMATION
  Report Type: Spontaneous
  Country: DE (occurrence: DE)
  Receive Date: 20151221
  Receipt Date: 20151221
  Transmission Date: 20160305
  Serious: Yes (Hospitalization)
  Sender: FDA-Public Use
  Company Number: DE-JNJFOC-20151217734

PATIENT
  Age: 67 Year
  Sex: Male
  Weight: 101 kg

DRUGS (3)
  1. ADEMPAS [Suspect]
     Active Substance: RIOCIGUAT
     Indication: PULMONARY HYPERTENSION
     Route: 065
     Dates: start: 20150728
  2. XARELTO [Suspect]
     Active Substance: RIVAROXABAN
     Indication: ANTICOAGULANT THERAPY
     Route: 048
  3. OXYGEN. [Concomitant]
     Active Substance: OXYGEN
     Dosage: 2L/MIN
     Route: 065

REACTIONS (1)
  - Angioplasty [Recovered/Resolved]

NARRATIVE: CASE EVENT DATE: 20151015
